FAERS Safety Report 4484409-6 (Version None)
Quarter: 2004Q4

REPORT INFORMATION
  Report Type: 
  Country: None (occurrence: None)
  Receive Date: 20041025
  Receipt Date: 20041015
  Transmission Date: 20050328
  Serious: Yes (Hospitalization)
  Sender: FDA-Public Use
  Company Number: PHBS2004CH13693

PATIENT
  Age: 24 Year
  Sex: Male

DRUGS (9)
  1. TEGRETOL [Suspect]
     Indication: GRAND MAL CONVULSION
     Dosage: 800 MG/DAY
     Route: 048
     Dates: end: 20040913
  2. PHENOBARBITAL TAB [Concomitant]
     Indication: GRAND MAL CONVULSION
     Dosage: 100 MG/DAY
     Route: 048
  3. TOPAMAX [Concomitant]
     Dosage: 400 MG/DAY
     Route: 048
  4. KEPPRA [Concomitant]
     Dosage: 3000 MG/DAY
     Route: 048
  5. BENADON [Concomitant]
     Indication: TUBERCULOSIS
     Dosage: 300 MG/DAY
     Route: 048
  6. MYAMBUTOL [Concomitant]
     Indication: TUBERCULOSIS
     Dosage: 2 G/ 3 TIMES A WEEK
     Route: 048
  7. RIMACTANE [Concomitant]
     Indication: TUBERCULOSIS
     Dosage: 600 MG/3 TIMES A WEEK
     Route: 048
  8. RIMIFON [Concomitant]
     Indication: TUBERCULOSIS
     Dosage: 900 MG/3 TIMES A WEEK
     Route: 048
  9. AVELOX [Concomitant]
     Dosage: 400 MG/DAY
     Route: 048

REACTIONS (4)
  - CONVULSION [None]
  - FEELING ABNORMAL [None]
  - GAMMA-GLUTAMYLTRANSFERASE INCREASED [None]
  - HYPERAMMONAEMIA [None]
